FAERS Safety Report 10120408 (Version 2)
Quarter: 2014Q4

REPORT INFORMATION
  Report Type: Other
  Country: None (occurrence: US)
  Receive Date: 20140425
  Receipt Date: 20141125
  Transmission Date: 20150528
  Serious: Yes (Death, Hospitalization, Other)
  Sender: FDA-Public Use
  Company Number: US-GSKPPD-2014GSK007348

PATIENT
  Age: 52 Year
  Sex: Female

DRUGS (5)
  1. LABETALOL [Concomitant]
     Active Substance: LABETALOL\LABETALOL HYDROCHLORIDE
     Route: 048
     Dates: start: 201003
  2. NIFEDIPINE ER [Concomitant]
     Active Substance: NIFEDIPINE
     Route: 048
     Dates: start: 201003
  3. CLONIDINE TTS-3 [Concomitant]
     Route: 062
     Dates: start: 201003
  4. AVANDIA [Suspect]
     Active Substance: ROSIGLITAZONE MALEATE
     Indication: DIABETES MELLITUS
     Dosage: AVANDIA WAS NOT LISTED AMONG THE PATIENTS DISCHARGE RECORDS.
     Route: 048
  5. PLAVIX [Concomitant]
     Active Substance: CLOPIDOGREL BISULFATE

REACTIONS (2)
  - Cerebrovascular accident [Recovered/Resolved]
  - Arrhythmia [Fatal]

NARRATIVE: CASE EVENT DATE: 20100307
